FAERS Safety Report 6099860-0 (Version None)
Quarter: 2009Q1

REPORT INFORMATION
  Report Type: 
  Country: None (occurrence: None)
  Receive Date: 20090303
  Receipt Date: 20090227
  Transmission Date: 20090719
  Serious: Yes (Death)
  Sender: FDA-Public Use
  Company Number: PHBS2006JP09429

PATIENT
  Age: 31 Year
  Sex: Male

DRUGS (4)
  1. NEORAL [Suspect]
     Indication: RENAL TRANSPLANT
     Dosage: UNK, UNK
     Route: 065
     Dates: start: 19960101
  2. PREDNISOLONE [Suspect]
     Indication: RENAL TRANSPLANT
     Dates: start: 19960101
  3. MYCOPHENOLATE MOFETIL [Suspect]
     Indication: RENAL TRANSPLANT
     Dates: start: 19960101
  4. AZATHIOPRINE [Suspect]
     Indication: RENAL TRANSPLANT

REACTIONS (6)
  - LYMPHADENOPATHY [None]
  - LYMPHOCYTE MORPHOLOGY ABNORMAL [None]
  - MEDIASTINUM NEOPLASM [None]
  - T-CELL LYMPHOMA [None]
  - TONSILLAR DISORDER [None]
  - TUMOUR LYSIS SYNDROME [None]
